FAERS Safety Report 6913075-2 (Version None)
Quarter: 2010Q3

REPORT INFORMATION
  Report Type: 
  Country: None (occurrence: None)
  Receive Date: 20100806
  Receipt Date: 20090625
  Transmission Date: 20110219
  Serious: No
  Sender: FDA-Public Use
  Company Number: US-PFIZER INC-2009233254

PATIENT
  Sex: Female

DRUGS (1)
  1. DILANTIN-125 [Suspect]
     Dosage: UNK

REACTIONS (5)
  - BALANCE DISORDER [None]
  - COMMUNICATION DISORDER [None]
  - INSOMNIA [None]
  - RASH [None]
  - SCREAMING [None]
